FAERS Safety Report 9286360 (Version 1)
Quarter: 2013Q2

REPORT INFORMATION
  Report Type: Spontaneous
  Country: FR (occurrence: None)
  Receive Date: 20130508
  Receipt Date: 20130508
  Transmission Date: 20140414
  Serious: Yes (Other)
  Sender: FDA-Public Use
  Company Number: SYM-2013-03567

PATIENT
  Age: 61 Year
  Sex: Male

DRUGS (3)
  1. 5-FLUOROURACIL [Suspect]
     Indication: LYMPHADENOPATHY
  2. CISPLATINUM [Suspect]
     Indication: CERVIX CARCINOMA
  3. UNSPECIFIED INGREDIENTS [Suspect]
     Indication: CERVIX CARCINOMA

REACTIONS (2)
  - Mucosal inflammation [None]
  - Inflammation [None]
